FAERS Safety Report 20963852 (Version 1)
Quarter: 2022Q2

REPORT INFORMATION
  Report Type: Spontaneous
  Country: US (occurrence: US)
  Receive Date: 20220615
  Receipt Date: 20220615
  Transmission Date: 20220721
  Serious: No
  Sender: FDA-Public Use
  Company Number: US-INCYTE CORPORATION-2022IN005591

PATIENT

DRUGS (1)
  1. JAKAFI [Suspect]
     Active Substance: RUXOLITINIB
     Indication: Complications of transplant surgery
     Dosage: 5 MILLIGRAM (1 TABLET DISSOLVE 1 TABLET IN 5 ML WATER, ADMINISTER 2.5 ML VIA TUBE TWICE DAILY)

REACTIONS (2)
  - Product preparation issue [Unknown]
  - Off label use [Unknown]
